FAERS Safety Report 4733896-4 (Version None)
Quarter: 2005Q3

REPORT INFORMATION
  Report Type: 
  Country: None (occurrence: None)
  Receive Date: 20050803
  Receipt Date: 20050705
  Transmission Date: 20060218
  Serious: Yes (Hospitalization, Other)
  Sender: FDA-Public Use
  Company Number: US-MERCK-0507USA00571

PATIENT
  Sex: Female
  Weight: 103 kg

DRUGS (7)
  1. VIOXX [Suspect]
     Indication: OSTEOARTHRITIS
     Route: 048
     Dates: start: 20010409, end: 20020101
  2. VIOXX [Suspect]
     Route: 048
     Dates: start: 20020101, end: 20031205
  3. PREMARIN [Concomitant]
     Route: 065
  4. LORTAB [Concomitant]
     Route: 065
  5. IRON (UNSPECIFIED) [Concomitant]
     Route: 065
  6. ADVAIR DISKUS 100/50 [Concomitant]
     Route: 065
  7. [THERAPY UNSPECIFIED] [Concomitant]
     Route: 065

REACTIONS (7)
  - CARDIAC DISORDER [None]
  - CEREBROVASCULAR ACCIDENT [None]
  - CHEST PAIN [None]
  - HEADACHE [None]
  - HYPERTENSION [None]
  - NERVOUSNESS [None]
  - TREATMENT NONCOMPLIANCE [None]
